FAERS Safety Report 10416308 (Version 1)
Quarter: 2014Q2

REPORT INFORMATION
  Report Type: Spontaneous
  Country: US (occurrence: None)
  Receive Date: 20140604
  Receipt Date: 20140604
  Transmission Date: 20141212
  Serious: Yes (Hospitalization)
  Sender: FDA-Public Use
  Company Number: 163-POMAL-14034198

PATIENT
  Age: 74 Year
  Sex: Female

DRUGS (1)
  1. POMALYST (POMALIDOMIDE) (4 MILLIGRAM, CAPSULES) [Suspect]
     Indication: HODGKIN^S DISEASE
     Dosage: DISCONTINUED
     Route: 048
     Dates: start: 201312

REACTIONS (1)
  - White blood cell count decreased [None]
